FAERS Safety Report 9060620 (Version 1)
Quarter: 2013Q1

REPORT INFORMATION
  Report Type: Spontaneous
  Country: US (occurrence: US)
  Receive Date: 20130211
  Receipt Date: 20130211
  Transmission Date: 20140127
  Serious: No
  Sender: FDA-Public Use
  Company Number: US-ASTRAZENECA-2013SE08878

PATIENT
  Age: 72 Year
  Sex: Male
  Weight: 72.6 kg

DRUGS (4)
  1. TOPROL-XL [Suspect]
     Indication: BLOOD PRESSURE
     Route: 048
     Dates: start: 2001
  2. TOPROL-XL [Suspect]
     Indication: BLOOD PRESSURE
     Dosage: GENERIC FORM
     Route: 048
  3. TOPROL-XL [Suspect]
     Indication: BLOOD PRESSURE
     Route: 048
  4. TOPROL-XL [Suspect]
     Indication: BLOOD PRESSURE
     Route: 048
     Dates: start: 201301

REACTIONS (4)
  - Hypertension [Unknown]
  - Nervousness [Unknown]
  - Anxiety [Unknown]
  - Drug dose omission [Unknown]
